FAERS Safety Report 4544511-7 (Version None)
Quarter: 2004Q4

REPORT INFORMATION
  Report Type: 
  Country: None (occurrence: None)
  Receive Date: 20041230
  Receipt Date: 20041220
  Transmission Date: 20050328
  Serious: Yes (Life-Threatening, Hospitalization, Other)
  Sender: FDA-Public Use
  Company Number: 2004-0007871

PATIENT
  Age: 61 Year
  Sex: 0
  Weight: 46 kg

DRUGS (4)
  1. VIREAD [Suspect]
     Indication: HIV INFECTION
     Dosage: 300 MG, 1 IN 1 D, ORAL
     Route: 048
     Dates: start: 20040601, end: 20040811
  2. SUSTIVA [Concomitant]
  3. ZIAGEN [Concomitant]
  4. PLAVIX [Concomitant]

REACTIONS (3)
  - FANCONI SYNDROME ACQUIRED [None]
  - HYPERKALAEMIA [None]
  - RENAL FAILURE ACUTE [None]
